FAERS Safety Report 6378343-4 (Version None)
Quarter: 2009Q3

REPORT INFORMATION
  Report Type: 
  Country: None (occurrence: None)
  Receive Date: 20090925
  Receipt Date: 20090720
  Transmission Date: 20100115
  Serious: Yes (Other)
  Sender: FDA-Public Use
  Company Number: US-ASTRAZENECA-2007UW25479

PATIENT
  Age: 390 Month
  Sex: Female

DRUGS (14)
  1. SEROQUEL [Suspect]
     Indication: ANXIETY
     Dosage: 200 MG-400 MG
     Route: 048
     Dates: start: 20060101
  2. SEROQUEL [Suspect]
     Indication: DEPRESSION
     Dosage: 200 MG-400 MG
     Route: 048
     Dates: start: 20060101
  3. SEROQUEL [Suspect]
     Indication: BIPOLAR DISORDER
     Dosage: 200 MG-400 MG
     Route: 048
     Dates: start: 20060101
  4. SEROQUEL [Suspect]
     Dosage: 100-200 MG
     Route: 048
     Dates: start: 20061101
  5. SEROQUEL [Suspect]
     Dosage: 100-200 MG
     Route: 048
     Dates: start: 20061101
  6. SEROQUEL [Suspect]
     Dosage: 100-200 MG
     Route: 048
     Dates: start: 20061101
  7. DEPAKOTE ER [Concomitant]
     Dates: start: 20061101
  8. DOXYCYCLINE [Concomitant]
     Dates: start: 20061206
  9. RANITIDINE [Concomitant]
     Dates: start: 20071205
  10. HYDROCODONE BITARTRATE AND ACETAMINOPHEN [Concomitant]
     Dosage: 5/500 MG
     Dates: start: 20070410
  11. AZITHROMYCIN [Concomitant]
     Dates: start: 20070410
  12. DIFLUNISAL [Concomitant]
     Dates: start: 20070410
  13. ASACOL [Concomitant]
     Dates: start: 20071205
  14. HALOPERIDOL [Concomitant]
     Dates: start: 20070426

REACTIONS (3)
  - DIABETES MELLITUS [None]
  - KETOACIDOSIS [None]
  - PANCREATITIS [None]
